FAERS Safety Report 21487673 (Version 2)
Quarter: 2022Q4

REPORT INFORMATION
  Report Type: Spontaneous
  Country: BR (occurrence: BR)
  Receive Date: 20221020
  Receipt Date: 20221025
  Transmission Date: 20230112
  Serious: Yes (Other)
  Sender: FDA-Public Use
  Company Number: BR-ORGANON-O2210BRA001102

PATIENT
  Age: 40 Year
  Sex: Female
  Weight: 94 kg

DRUGS (5)
  1. ETONOGESTREL [Suspect]
     Active Substance: ETONOGESTREL
     Indication: Menstrual cycle management
     Dosage: 1 IMPLANT IN LEFT ARM
     Route: 059
     Dates: start: 20220908
  2. ISOTRETINOIN [Concomitant]
     Active Substance: ISOTRETINOIN
     Dosage: 2 TABLETS DAILY
     Dates: start: 202205
  3. PURAN [Concomitant]
     Active Substance: LEVOTHYROXINE SODIUM
     Indication: Thyroid disorder
     Dosage: 1 TABLET DAILY
     Dates: start: 202208
  4. ATENOLOL [Concomitant]
     Active Substance: ATENOLOL
     Indication: Arrhythmia
     Dosage: UNK
     Route: 048
  5. ATENOLOL [Concomitant]
     Active Substance: ATENOLOL
     Dosage: 1 TABLET DAILY
     Route: 048
     Dates: start: 20220913

REACTIONS (6)
  - Arrhythmia [Unknown]
  - Stress [Unknown]
  - Endometriosis [Unknown]
  - Menstrual disorder [Recovered/Resolved]
  - Anaemia [Unknown]
  - Product use in unapproved indication [Unknown]

NARRATIVE: CASE EVENT DATE: 20220101
